FAERS Safety Report 16048118 (Version 1)
Quarter: 2019Q1

REPORT INFORMATION
  Report Type: Spontaneous
  Country: US (occurrence: US)
  Receive Date: 20190307
  Receipt Date: 20190307
  Transmission Date: 20190418
  Serious: Yes (Hospitalization, Other)
  Sender: FDA-Public Use
  Company Number: US-PURDUE PHARMA-USA-2019-0146272

PATIENT
  Age: 73 Year
  Sex: Female
  Weight: 45.35 kg

DRUGS (3)
  1. SUBOXONE [Concomitant]
     Active Substance: BUPRENORPHINE HYDROCHLORIDE\NALOXONE HYDROCHLORIDE
     Indication: PAIN
     Dosage: 8 MG, TID
     Route: 048
     Dates: start: 2018
  2. OXYCONTIN [Suspect]
     Active Substance: OXYCODONE HYDROCHLORIDE
     Indication: PAIN
     Route: 048
  3. LYRICA [Suspect]
     Active Substance: PREGABALIN
     Indication: FIBROMYALGIA
     Dosage: 25 MG, BID
     Route: 048
     Dates: end: 20181212

REACTIONS (8)
  - Paralysis [Unknown]
  - Life support [Recovered/Resolved]
  - Vision blurred [Unknown]
  - Musculoskeletal stiffness [Unknown]
  - Sinus congestion [Unknown]
  - Myocardial infarction [Unknown]
  - Visual impairment [Unknown]
  - Overdose [Unknown]

NARRATIVE: CASE EVENT DATE: 201812
